FAERS Safety Report 8759951 (Version 3)
Quarter: 2012Q4

REPORT INFORMATION
  Report Type: 
  Country: JP (occurrence: JP)
  Receive Date: 20120829
  Receipt Date: 20121025
  Transmission Date: 20130627
  Serious: Yes (Hospitalization)
  Sender: FDA-Public Use
  Company Number: JP-GLAXOSMITHKLINE-B0816552A

PATIENT
  Age: 59 Year
  Sex: Female

DRUGS (9)
  1. LAMICTAL [Suspect]
     Indication: DEPRESSION
     Dosage: 25MG Per day
     Route: 048
     Dates: start: 20120121
  2. LAMICTAL [Suspect]
     Indication: DEPRESSION
     Dosage: 50MG Per day
     Route: 048
  3. LAMICTAL [Suspect]
     Indication: DEPRESSION
     Dosage: 100MG Per day
     Route: 048
  4. LAMICTAL [Suspect]
     Indication: DEPRESSION
     Dosage: 200MG Per day
     Route: 048
     Dates: end: 20120704
  5. LAMICTAL [Suspect]
     Indication: DEPRESSION
     Dosage: 100MG Per day
     Route: 048
     Dates: start: 20120705, end: 20120718
  6. RISPERIDONE [Concomitant]
     Dosage: 1MG Twice per day
     Route: 048
     Dates: start: 20111213
  7. ETISEDAN [Concomitant]
     Dosage: .5MG Per day
     Route: 048
     Dates: start: 20120121, end: 20120206
  8. ETISEDAN [Concomitant]
     Dosage: .5MG Twice per day
     Route: 048
     Dates: start: 20120207, end: 20120214
  9. LIMAS [Concomitant]
     Dosage: 200MG Per day
     Route: 048
     Dates: start: 20120719

REACTIONS (6)
  - Overdose [Unknown]
  - Hypomania [Recovering/Resolving]
  - Anxiety [Unknown]
  - Irritability [Unknown]
  - Anger [Unknown]
  - Aggression [Unknown]
